FAERS Safety Report 8995830 (Version 2)
Quarter: 2013Q1

REPORT INFORMATION
  Report Type: Spontaneous
  Country: US (occurrence: US)
  Receive Date: 20130103
  Receipt Date: 20130118
  Transmission Date: 20140127
  Serious: Yes (Other)
  Sender: FDA-Public Use
  Company Number: PHEH2012US025576

PATIENT
  Age: 52 Year
  Sex: Female
  Weight: 100.23 kg

DRUGS (7)
  1. GILENYA [Suspect]
     Indication: RELAPSING-REMITTING MULTIPLE SCLEROSIS
     Dosage: 0.5 MG, DAILY
     Route: 048
     Dates: start: 20120106, end: 20130105
  2. GILENYA [Suspect]
     Dosage: 0.5 UNK, UNK
     Route: 048
     Dates: start: 20130107
  3. PROZAC [Concomitant]
  4. VITAMIN B12 [Concomitant]
     Route: 048
  5. ASPIRIN [Concomitant]
     Dosage: 81 MG, UNK
  6. ADDERALL [Concomitant]
  7. PROVIGIL [Concomitant]

REACTIONS (3)
  - Epistaxis [Recovered/Resolved]
  - Blood pressure increased [Recovered/Resolved]
  - Fatigue [Unknown]
